FAERS Safety Report 9304445 (Version 2)
Quarter: 2014Q1

REPORT INFORMATION
  Report Type: Report from Study
  Country: JP (occurrence: JP)
  Receive Date: 20130522
  Receipt Date: 20140305
  Transmission Date: 20141002
  Serious: Yes (Death, Other)
  Sender: FDA-Public Use
  Company Number: JP-ROCHE-1226112

PATIENT
  Sex: 0

DRUGS (3)
  1. TRASTUZUMAB [Suspect]
     Indication: METASTATIC GASTRIC CANCER
     Dosage: INITIAL DOSE
     Route: 065
  2. TRASTUZUMAB [Suspect]
     Route: 065
  3. PACLITAXEL [Suspect]
     Indication: METASTATIC GASTRIC CANCER
     Dosage: DAYS 1, 8, AND, 15
     Route: 065

REACTIONS (4)
  - Death [Fatal]
  - Leukopenia [Unknown]
  - Neutropenia [Unknown]
  - Anaemia [Unknown]
